FAERS Safety Report 12947780 (Version 1)
Quarter: 2016Q4

REPORT INFORMATION
  Report Type: Spontaneous
  Country: US (occurrence: US)
  Receive Date: 20161116
  Receipt Date: 20161116
  Transmission Date: 20170207
  Serious: Yes (Hospitalization)
  Sender: FDA-Public Use
  Company Number: US-MIKART, INC.-1059599

PATIENT
  Age: 30 Year
  Sex: Male
  Weight: 71.82 kg

DRUGS (1)
  1. CHLORZOXAZONE. [Suspect]
     Active Substance: CHLORZOXAZONE
     Route: 048

REACTIONS (3)
  - Liver function test increased [Unknown]
  - Abdominal pain [Unknown]
  - Fatigue [Unknown]
